FAERS Safety Report 21305633 (Version 1)
Quarter: 2022Q3

REPORT INFORMATION
  Report Type: Spontaneous
  Country: US (occurrence: None)
  Receive Date: 20220908
  Receipt Date: 20220908
  Transmission Date: 20221027
  Serious: No
  Sender: FDA-Public Use
  Company Number: 2022A290490

PATIENT
  Sex: Female
  Weight: 103.4 kg

DRUGS (3)
  1. BYDUREON BCISE [Suspect]
     Active Substance: EXENATIDE
     Indication: Diabetes mellitus
     Route: 058
  2. BYETTA [Suspect]
     Active Substance: EXENATIDE
     Indication: Diabetes mellitus
     Route: 058
  3. JANUVIA [Concomitant]
     Active Substance: SITAGLIPTIN PHOSPHATE

REACTIONS (6)
  - Blood glucose increased [Unknown]
  - Injection site indentation [Unknown]
  - Drug dose omission by device [Unknown]
  - Intentional device misuse [Unknown]
  - Insurance issue [Unknown]
  - Device leakage [Unknown]
